APPROVED DRUG PRODUCT: TECHNETIUM TC-99M PENTETATE KIT
Active Ingredient: TECHNETIUM TC-99M PENTETATE KIT
Strength: N/A
Dosage Form/Route: INJECTABLE;INJECTION
Application: A215146 | Product #001 | TE Code: AP
Applicant: CURIUM US LLC
Approved: Mar 26, 2025 | RLD: No | RS: No | Type: RX